FAERS Safety Report 12521883 (Version 1)
Quarter: 2016Q3

REPORT INFORMATION
  Report Type: Spontaneous
  Country: SG (occurrence: SG)
  Receive Date: 20160701
  Receipt Date: 20160701
  Transmission Date: 20161109
  Serious: Yes (Death, Other)
  Sender: FDA-Public Use
  Company Number: SG-BAYER-2016-125234

PATIENT
  Age: 62 Year
  Sex: Male

DRUGS (1)
  1. ACETYLSALICYLIC ACID({=100 MG) [Suspect]
     Active Substance: ASPIRIN
     Dosage: 6 WEEKS POST-WEB EMBOLIZATION

REACTIONS (2)
  - Subarachnoid haemorrhage [Fatal]
  - Subarachnoid haemorrhage [None]
